FAERS Safety Report 12067708 (Version 1)
Quarter: 2016Q1

REPORT INFORMATION
  Report Type: Spontaneous
  Country: CA (occurrence: CA)
  Receive Date: 20160211
  Receipt Date: 20160211
  Transmission Date: 20160526
  Serious: Yes (Other)
  Sender: FDA-Public Use
  Company Number: CA-TEVA-633706ACC

PATIENT
  Age: 46 Year
  Sex: Male
  Weight: 127.12 kg

DRUGS (3)
  1. ABILIFY [Concomitant]
     Active Substance: ARIPIPRAZOLE
  2. ABILIFY MAINTENA 200MG/ML AFTER RECONSTITUTION. SYRINGE AND DILUENT IN [Concomitant]
  3. TEVA-OLANZAPINE [Suspect]
     Active Substance: OLANZAPINE
     Indication: SCHIZOPHRENIA
     Dosage: 30 MILLIGRAM DAILY;
     Route: 048

REACTIONS (8)
  - Psychotic disorder [Unknown]
  - Cognitive disorder [Unknown]
  - Irritability [Unknown]
  - Product substitution issue [Unknown]
  - General physical health deterioration [Unknown]
  - Mood swings [Unknown]
  - Condition aggravated [Unknown]
  - Thinking abnormal [Unknown]
